FAERS Safety Report 7102624-X (Version None)
Quarter: 2010Q4

REPORT INFORMATION
  Report Type: 
  Country: None (occurrence: None)
  Receive Date: 20101115
  Receipt Date: 20101108
  Transmission Date: 20110411
  Serious: Yes (Other)
  Sender: FDA-Public Use
  Company Number: B0683420A

PATIENT
  Sex: Female

DRUGS (1)
  1. ZOVIRAX [Suspect]
     Indication: EYE INFECTION VIRAL
     Dosage: 2APP PER DAY
     Route: 047
     Dates: start: 20101104, end: 20101105

REACTIONS (4)
  - DRUG DISPENSING ERROR [None]
  - EYE PAIN [None]
  - INJURY CORNEAL [None]
  - VISION BLURRED [None]
